FAERS Safety Report 7245168-7 (Version None)
Quarter: 2011Q1

REPORT INFORMATION
  Report Type: 
  Country: None (occurrence: None)
  Receive Date: 20110126
  Receipt Date: 20110119
  Transmission Date: 20110831
  Serious: Yes (Other)
  Sender: FDA-Public Use
  Company Number: US-SANOFI-AVENTIS-2011SA004249

PATIENT
  Age: 76 Year
  Sex: Male

DRUGS (5)
  1. OMEPRAZOLE [Concomitant]
  2. MULTI-VITAMINS [Concomitant]
  3. WARFARIN [Concomitant]
     Dosage: 3MG FOR THREE DAYS, 1.5MG FOR 4DAYS
  4. MULTAQ [Suspect]
     Indication: ATRIAL FIBRILLATION
     Route: 048
     Dates: start: 20090901
  5. TERAZOSIN HCL [Concomitant]

REACTIONS (2)
  - ATRIAL FIBRILLATION [None]
  - RENAL FAILURE [None]
